FAERS Safety Report 22223056 (Version 1)
Quarter: 2023Q2

REPORT INFORMATION
  Report Type: Spontaneous
  Country: UA (occurrence: None)
  Receive Date: 20230417
  Receipt Date: 20230417
  Transmission Date: 20230722
  Serious: Yes (Congenital Anomaly)
  Sender: FDA-Public Use
  Company Number: None

PATIENT
  Age: 29 Year
  Sex: Male
  Weight: 65 kg

DRUGS (15)
  1. ESCITALOPRAM [Suspect]
     Active Substance: ESCITALOPRAM OXALATE
     Indication: Depression
     Dosage: FREQUENCY : TWICE A DAY;?
     Route: 048
     Dates: start: 20190312
  2. ESCITALOPRAM [Suspect]
     Active Substance: ESCITALOPRAM OXALATE
     Indication: Asthenia
  3. AMITRIPTYLINE [Suspect]
     Active Substance: AMITRIPTYLINE
  4. IMIPRAMINE [Suspect]
     Active Substance: IMIPRAMINE
  5. RISPERIDONE [Concomitant]
     Active Substance: RISPERIDONE
  6. OLANZAPINE [Concomitant]
     Active Substance: OLANZAPINE
  7. THIORIDAZINE [Concomitant]
  8. QUETIAPINE [Concomitant]
  9. PIZOTIFEN [Concomitant]
  10. TRAZODONE [Concomitant]
  11. FLUOXETINE [Concomitant]
     Active Substance: FLUOXETINE HYDROCHLORIDE
  12. IMIPRAMINE [Concomitant]
  13. ESCITALOPRAM [Concomitant]
  14. CARIPRAZINE [Concomitant]
     Active Substance: CARIPRAZINE
  15. Kudzu root (puerarin) [Concomitant]

REACTIONS (11)
  - Sleep disorder [None]
  - Mood swings [None]
  - Adjustment disorder with depressed mood [None]
  - Asthenia [None]
  - Fatigue [None]
  - Somnolence [None]
  - Disturbance in attention [None]
  - Asthenia [None]
  - Confusional state [None]
  - Somnolence [None]
  - Paradoxical drug reaction [None]

NARRATIVE: CASE EVENT DATE: 20190312
